FAERS Safety Report 14255155 (Version 1)
Quarter: 2017Q4

REPORT INFORMATION
  Report Type: Spontaneous
  Country: JP (occurrence: JP)
  Receive Date: 20171206
  Receipt Date: 20171206
  Transmission Date: 20180321
  Serious: Yes (Life-Threatening, Hospitalization, Disabling, Other)
  Sender: FDA-Public Use
  Company Number: JP-GLAXOSMITHKLINE-JP2017JPN136872

PATIENT
  Age: 68 Year
  Sex: Male
  Weight: 67 kg

DRUGS (19)
  1. DEPAKENE [Concomitant]
     Active Substance: VALPROIC ACID
     Dosage: UNK
  2. PITAVASTATIN CALCIUM [Concomitant]
     Active Substance: PITAVASTATIN CALCIUM
     Dosage: UNK
  3. AMLODIPINE [Concomitant]
     Active Substance: AMLODIPINE BESYLATE
     Dosage: UNK
  4. ATENOLOL. [Concomitant]
     Active Substance: ATENOLOL
     Dosage: UNK
  5. PARIET [Concomitant]
     Active Substance: RABEPRAZOLE SODIUM
     Dosage: UNK
  6. ZETIA [Concomitant]
     Active Substance: EZETIMIBE
     Dosage: UNK
  7. AVOLVE [Concomitant]
     Active Substance: DUTASTERIDE
     Dosage: UNK
  8. HIRNAMIN [Concomitant]
     Active Substance: PHENOTHIAZINE
     Dosage: UNK
  9. LAMICTAL [Suspect]
     Active Substance: LAMOTRIGINE
     Dosage: 25 MG, 1D
     Route: 048
     Dates: start: 20170711, end: 20170724
  10. XARELTO [Concomitant]
     Active Substance: RIVAROXABAN
     Dosage: UNK
  11. LAMICTAL [Suspect]
     Active Substance: LAMOTRIGINE
     Indication: DEPRESSION
     Dosage: 25 MG, QOD
     Route: 048
     Dates: start: 20170629, end: 20170710
  12. LAMICTAL [Suspect]
     Active Substance: LAMOTRIGINE
     Dosage: 50 MG, 1D
     Route: 048
     Dates: start: 20170725, end: 20170808
  13. FEBURIC [Concomitant]
     Active Substance: FEBUXOSTAT
     Dosage: UNK
  14. AROFUTO [Concomitant]
     Dosage: UNK
  15. BAYASPIRIN [Concomitant]
     Active Substance: ASPIRIN
     Dosage: UNK
  16. URIEF [Concomitant]
     Active Substance: SILODOSIN
     Dosage: UNK
  17. QUETIAPINE. [Concomitant]
     Active Substance: QUETIAPINE
     Dosage: UNK
  18. LUNESTA [Concomitant]
     Active Substance: ESZOPICLONE
     Dosage: UNK
  19. MIYA-BM [Concomitant]
     Active Substance: CLOSTRIDIUM BUTYRICUM SPORES STRAIN M-55
     Dosage: UNK

REACTIONS (14)
  - Scab [Unknown]
  - Skin erosion [Unknown]
  - Cholestasis [Unknown]
  - Hepatic function abnormal [Unknown]
  - Lip erosion [Unknown]
  - Blister [Unknown]
  - Pyrexia [Unknown]
  - Drug titration error [Unknown]
  - Toxic epidermal necrolysis [Recovered/Resolved with Sequelae]
  - Infection [Unknown]
  - Oral mucosa erosion [Unknown]
  - Erythema [Unknown]
  - Rash [Recovering/Resolving]
  - Back pain [Unknown]

NARRATIVE: CASE EVENT DATE: 20170711
